FAERS Safety Report 18774730 (Version 2)
Quarter: 2021Q1

REPORT INFORMATION
  Report Type: Report from Study
  Country: CA (occurrence: CA)
  Receive Date: 20210122
  Receipt Date: 20210218
  Transmission Date: 20210419
  Serious: Yes (Other)
  Sender: FDA-Public Use
  Company Number: CA-JNJFOC-20210123955

PATIENT
  Age: 69 Year
  Sex: Male

DRUGS (2)
  1. STELARA [Suspect]
     Active Substance: USTEKINUMAB
     Route: 058
     Dates: start: 20210209
  2. STELARA [Suspect]
     Active Substance: USTEKINUMAB
     Indication: CROHN^S DISEASE
     Route: 058

REACTIONS (3)
  - Prostatic specific antigen increased [Recovered/Resolved]
  - Oral herpes [Recovered/Resolved]
  - Crohn^s disease [Unknown]

NARRATIVE: CASE EVENT DATE: 20210113
